FAERS Safety Report 25529887 (Version 2)
Quarter: 2025Q3

REPORT INFORMATION
  Report Type: Spontaneous
  Country: EU (occurrence: EU)
  Receive Date: 20250708
  Receipt Date: 20250717
  Transmission Date: 20251020
  Serious: Yes (Other)
  Sender: INCYTE
  Company Number: EU-EVENT-003398

PATIENT
  Age: 55 Year

DRUGS (1)
  1. OPZELURA [Suspect]
     Active Substance: RUXOLITINIB PHOSPHATE
     Indication: Vitiligo
     Dosage: UNK, 2X/WEEK
     Route: 065

REACTIONS (2)
  - Squamous cell carcinoma of skin [Unknown]
  - Off label use [Unknown]
